FAERS Safety Report 7963430-7 (Version None)
Quarter: 2011Q4

REPORT INFORMATION
  Report Type: 
  Country: None (occurrence: None)
  Receive Date: 20111205
  Receipt Date: 20111118
  Transmission Date: 20120403
  Serious: Yes (Death, Hospitalization)
  Sender: FDA-Public Use
  Company Number: UTC-011598

PATIENT
  Age: 60 Year
  Sex: Female

DRUGS (4)
  1. REMODULIN [Suspect]
     Indication: COR PULMONALE CHRONIC
     Dosage: 28.8 UG/KG (0.02 UG/KG, 1 IN 1 MIN), INTRAVENOUS
     Route: 042
     Dates: start: 20100119
  2. DIURETICS (DIURETICS) [Concomitant]
  3. REVATIO [Concomitant]
  4. TRACLEER [Concomitant]

REACTIONS (5)
  - ADRENAL INSUFFICIENCY [None]
  - ABDOMINAL INFECTION [None]
  - SEPTIC SHOCK [None]
  - HYPOKALAEMIA [None]
  - DEHYDRATION [None]
